FAERS Safety Report 5396452-3 (Version None)
Quarter: 2007Q3

REPORT INFORMATION
  Report Type: 
  Country: None (occurrence: None)
  Receive Date: 20070725
  Receipt Date: 20070712
  Transmission Date: 20080115
  Serious: Yes (Other)
  Sender: FDA-Public Use
  Company Number: US-ELI_LILLY_AND_COMPANY-US200706000756

PATIENT
  Sex: Female

DRUGS (15)
  1. FORTEO [Suspect]
     Dosage: UNK, UNK
     Dates: start: 20070529, end: 20070530
  2. KEPPRA [Concomitant]
     Dosage: 2000 MG, 2/D
  3. ZYRTEC [Concomitant]
     Dosage: 10 MG, DAILY (1/D)
  4. TRILEPTAL [Concomitant]
     Dosage: 600 MG, EACH MORNING
  5. TRILEPTAL [Concomitant]
     Dosage: 900 MG, EACH EVENING
  6. ZOLOFT [Concomitant]
     Dosage: 100 MG, DAILY (1/D)
  7. ADVAIR DISKUS 100/50 [Concomitant]
     Dosage: UNK, 2/D
     Route: 055
  8. ALBUTEROL [Concomitant]
  9. SPIRIVA [Concomitant]
     Route: 055
  10. FOSAMAX [Concomitant]
     Dosage: 70 MG, UNK
  11. ALBUTEROL SULATE [Concomitant]
     Route: 055
  12. LEVSIN [Concomitant]
     Dosage: 0.125 MG, AS NEEDED
  13. PREVACID [Concomitant]
     Dosage: 15 MG, DAILY (1/D)
  14. CALCIUM CHLORIDE [Concomitant]
     Dosage: 500 MG, DAILY (1/D)
  15. CENTRUM [Concomitant]

REACTIONS (6)
  - DIZZINESS [None]
  - DRUG INTOLERANCE [None]
  - NAUSEA [None]
  - VISION BLURRED [None]
  - VISUAL DISTURBANCE [None]
  - VOMITING [None]
